FAERS Safety Report 10682235 (Version 1)
Quarter: 2014Q4

REPORT INFORMATION
  Report Type: Spontaneous
  Country: US (occurrence: None)
  Receive Date: 20141229
  Receipt Date: 20141229
  Transmission Date: 20150529
  Serious: Yes (Disabling)
  Sender: FDA-Public Use
  Company Number: None

PATIENT
  Age: 46 Year
  Sex: Male
  Weight: 77.11 kg

DRUGS (1)
  1. LEVOFLOXACIN. [Suspect]
     Active Substance: LEVOFLOXACIN
     Indication: ACUTE SINUSITIS
     Dosage: 1
     Route: 048
     Dates: start: 20141208, end: 20141215

REACTIONS (3)
  - Muscle fatigue [None]
  - Tendon pain [None]
  - Pain [None]

NARRATIVE: CASE EVENT DATE: 20141215
